FAERS Safety Report 14967032 (Version 1)
Quarter: 2018Q2

REPORT INFORMATION
  Report Type: Spontaneous
  Country: KR (occurrence: KR)
  Receive Date: 20180604
  Receipt Date: 20180604
  Transmission Date: 20180711
  Serious: Yes (Life-Threatening, Other)
  Sender: FDA-Public Use
  Company Number: KR-CHEPLA-C20180222

PATIENT
  Age: 18 Year
  Sex: Female

DRUGS (5)
  1. DASATINIB. [Suspect]
     Active Substance: DASATINIB
     Indication: LEUKAEMIA
  2. ATRA (ALL-TRANS RETONOIC ACID) [Suspect]
     Active Substance: TRETINOIN
     Indication: LEUKAEMIA
  3. CYTARABINE. [Suspect]
     Active Substance: CYTARABINE
     Indication: LEUKAEMIA
     Dosage: CYTARABINE (100 MG/M2) FOR?7 DAYS
  4. EVEROLIMUS. [Suspect]
     Active Substance: EVEROLIMUS
     Indication: LEUKAEMIA
  5. IDARUBICIN [Suspect]
     Active Substance: IDARUBICIN
     Indication: LEUKAEMIA
     Dosage: IDARUBICIN (12 MG/M2) FOR 3 DAYS

REACTIONS (14)
  - Thrombocytopenia [Unknown]
  - Retro-orbital neoplasm [None]
  - Aleukaemic leukaemia [None]
  - Product use in unapproved indication [Unknown]
  - Exophthalmos [Unknown]
  - Condition aggravated [None]
  - Malignant neoplasm progression [None]
  - Chloroma [Unknown]
  - Pain in extremity [None]
  - Neutropenia [Unknown]
  - Drug ineffective [None]
  - Abdominal pain [Unknown]
  - Cardiac arrest [Recovered/Resolved]
  - Bone pain [Unknown]
